FAERS Safety Report 6567395-4 (Version None)
Quarter: 2010Q1

REPORT INFORMATION
  Report Type: 
  Country: None (occurrence: None)
  Receive Date: 20100202
  Receipt Date: 20100122
  Transmission Date: 20100710
  Serious: Yes (Other)
  Sender: FDA-Public Use
  Company Number: US-JNJFOC-20090906177

PATIENT
  Sex: Female

DRUGS (2)
  1. NUCYNTA [Suspect]
     Indication: ABDOMINAL PAIN
     Dosage: APPROXIMATELY 4-6 TABLETS DAILY
     Route: 048
  2. MORPHINE SULFATE [Concomitant]
     Dosage: EVERY 4-6 HOURS
     Route: 048

REACTIONS (1)
  - SUICIDAL IDEATION [None]
